FAERS Safety Report 6433367-3 (Version None)
Quarter: 2009Q4

REPORT INFORMATION
  Report Type: 
  Country: None (occurrence: None)
  Receive Date: 20091105
  Receipt Date: 20091026
  Transmission Date: 20100525
  Serious: Yes (Hospitalization)
  Sender: FDA-Public Use
  Company Number: WAES 0906USA04033

PATIENT
  Age: 76 Year
  Sex: Female

DRUGS (9)
  1. FOSAMAX [Suspect]
     Indication: OSTEOPOROSIS
     Dosage: 35 MG/WKY PO
     Route: 048
     Dates: start: 20090122, end: 20091020
  2. ARTIFICIAL TEAR MYTEAR [Concomitant]
  3. BLOPRESS [Concomitant]
  4. DEPAS [Concomitant]
  5. KARY UNI [Concomitant]
  6. MOHRUS [Concomitant]
  7. PARIET [Concomitant]
  8. BENIDIPINE HYDROCHLORIDE [Concomitant]
  9. SIMVASTATIN [Concomitant]

REACTIONS (8)
  - CONDITION AGGRAVATED [None]
  - DEHYDRATION [None]
  - ESCHERICHIA SEPSIS [None]
  - OSTEOARTHRITIS [None]
  - PYURIA [None]
  - URINARY TRACT INFECTION [None]
  - VENOUS THROMBOSIS [None]
  - VOMITING [None]
